FAERS Safety Report 5418663-0 (Version None)
Quarter: 2007Q3

REPORT INFORMATION
  Report Type: 
  Country: None (occurrence: None)
  Receive Date: 20070817
  Receipt Date: 20070807
  Transmission Date: 20080115
  Serious: Yes (Other)
  Sender: FDA-Public Use
  Company Number: CH-GILEAD-2007-0012988

PATIENT
  Sex: Male
  Weight: 76 kg

DRUGS (4)
  1. EMTRIVA [Suspect]
     Indication: HIV INFECTION
     Route: 048
     Dates: start: 20070320, end: 20070424
  2. VIRAMUNE [Concomitant]
     Indication: HIV INFECTION
     Route: 048
     Dates: start: 20000401
  3. VIREAD [Concomitant]
     Indication: HIV INFECTION
     Route: 048
     Dates: start: 20030901
  4. MORPHINE SULFATE [Concomitant]
     Indication: DRUG ABUSER
     Route: 048
     Dates: start: 20070101

REACTIONS (1)
  - LIVER DISORDER [None]
